FAERS Safety Report 6544561-5 (Version None)
Quarter: 2010Q1

REPORT INFORMATION
  Report Type: 
  Country: None (occurrence: None)
  Receive Date: 20100121
  Receipt Date: 20100112
  Transmission Date: 20100710
  Serious: Yes (Hospitalization)
  Sender: FDA-Public Use
  Company Number: US-JNJFOC-20100103707

PATIENT
  Sex: Male
  Weight: 51.7 kg

DRUGS (5)
  1. INFLIXIMAB [Suspect]
     Indication: CROHN'S DISEASE
     Route: 042
  2. INFLIXIMAB [Suspect]
     Route: 042
  3. 5-ASA [Concomitant]
     Route: 048
  4. BUDESONIDE [Concomitant]
  5. PREVACID [Concomitant]

REACTIONS (2)
  - ENTEROVESICAL FISTULA [None]
  - INTESTINAL OBSTRUCTION [None]
